FAERS Safety Report 17085316 (Version 1)
Quarter: 2019Q4

REPORT INFORMATION
  Report Type: Spontaneous
  Country: CZ (occurrence: CZ)
  Receive Date: 20191128
  Receipt Date: 20191128
  Transmission Date: 20200122
  Serious: Yes (Other)
  Sender: FDA-Public Use
  Company Number: CZ-AUROBINDO-AUR-APL-2019-073811

PATIENT
  Age: 83 Year
  Sex: Male

DRUGS (5)
  1. PLENDIL [Suspect]
     Active Substance: FELODIPINE
     Indication: PRODUCT USED FOR UNKNOWN INDICATION
     Dosage: 5 MILLIGRAM, ONCE A DAY(1/2-0-0 )
     Route: 065
  2. APO-OME [Suspect]
     Active Substance: OMEPRAZOLE
     Indication: PRODUCT USED FOR UNKNOWN INDICATION
     Dosage: UNK,ONCE A DAY
     Route: 065
  3. MICARDISPLUS [Suspect]
     Active Substance: HYDROCHLOROTHIAZIDE\TELMISARTAN
     Indication: PRODUCT USED FOR UNKNOWN INDICATION
     Dosage: UNK,1/2-0-1/2
     Route: 065
  4. TRITTICO AC [Suspect]
     Active Substance: TRAZODONE HYDROCHLORIDE
     Indication: PRODUCT USED FOR UNKNOWN INDICATION
     Dosage: 100 MILLIGRAM, ONCE A DAY
     Route: 065
  5. BINABIC [Suspect]
     Active Substance: BICALUTAMIDE
     Indication: PRODUCT USED FOR UNKNOWN INDICATION
     Dosage: 50 MILLIGRAM, ONCE A DAY
     Route: 065

REACTIONS (6)
  - Arrhythmia [Unknown]
  - Blood pressure fluctuation [Unknown]
  - Breast swelling [Unknown]
  - Bradycardia [Unknown]
  - Flatulence [Unknown]
  - Hot flush [Unknown]

NARRATIVE: CASE EVENT DATE: 2019
